FAERS Safety Report 8041028-2 (Version None)
Quarter: 2012Q1

REPORT INFORMATION
  Report Type: 
  Country: None (occurrence: None)
  Receive Date: 20120109
  Receipt Date: 20111227
  Transmission Date: 20120608
  Serious: Yes (Life-Threatening, Hospitalization, Other)
  Sender: FDA-Public Use
  Company Number: 2011P1015324

PATIENT
  Age: 73 Year
  Sex: Female
  Weight: 107 kg

DRUGS (12)
  1. GLIMEPIRIDE [Concomitant]
  2. FISH OIL [Concomitant]
  3. VITAMIN D [Concomitant]
  4. ASCORBIC ACID [Concomitant]
  5. SOTALOL HCL [Concomitant]
  6. ROSUVASTATIN [Concomitant]
  7. ASPIRIN [Concomitant]
  8. FOSINOPRIL SODIUM [Concomitant]
  9. DIPYRIDAMOLE [Suspect]
     Indication: SCAN MYOCARDIAL PERFUSION
     Dosage: 0.57 MG/KG;X1
  10. INSULIN DETEMIR [Concomitant]
  11. METFORMIN [Concomitant]
  12. METOPROLOL TARTRATE [Concomitant]

REACTIONS (14)
  - TACHYCARDIA [None]
  - ACUTE RESPIRATORY DISTRESS SYNDROME [None]
  - ELECTROCARDIOGRAM QRS COMPLEX SHORTENED [None]
  - ANAPHYLACTIC REACTION [None]
  - HYPOXIA [None]
  - CARDIAC FAILURE CONGESTIVE [None]
  - ELECTROCARDIOGRAM ST-T SEGMENT ABNORMAL [None]
  - NO THERAPEUTIC RESPONSE [None]
  - BLOOD LACTIC ACID INCREASED [None]
  - GENERAL PHYSICAL HEALTH DETERIORATION [None]
  - BLOOD PRESSURE INCREASED [None]
  - PULSELESS ELECTRICAL ACTIVITY [None]
  - SHOCK [None]
  - NON-CARDIOGENIC PULMONARY OEDEMA [None]
